FAERS Safety Report 20768839 (Version 1)
Quarter: 2022Q2

REPORT INFORMATION
  Report Type: Spontaneous
  Country: GB (occurrence: GB)
  Receive Date: 20220429
  Receipt Date: 20220429
  Transmission Date: 20220721
  Serious: Yes (Death)
  Sender: FDA-Public Use
  Company Number: GB-LDELTA-NLLD0037310

PATIENT
  Age: 38 Year
  Sex: Male
  Weight: 77 kg

DRUGS (15)
  1. DIAZEPAM [Suspect]
     Active Substance: DIAZEPAM
     Indication: Anxiety
     Dosage: 4 MILLIGRAM, QD (WHEN NEEDED)
     Route: 048
  2. SERTRALINE [Suspect]
     Active Substance: SERTRALINE HYDROCHLORIDE
     Indication: Mood swings
     Dosage: 200 MILLIGRAM, QD
     Route: 048
     Dates: end: 20210901
  3. CLOZAPINE [Suspect]
     Active Substance: CLOZAPINE
     Indication: Schizophrenia
     Dosage: 350 MILLIGRAM, QD (100 MG MANE AND 250 MG NOCTE )
     Route: 048
     Dates: start: 20050908, end: 20210901
  4. ALCOHOL [Concomitant]
     Active Substance: ALCOHOL
     Dosage: UNK
  5. CAFFEINE [Concomitant]
     Active Substance: CAFFEINE
     Dosage: UNK
  6. SCOPOLAMINE [Concomitant]
     Active Substance: SCOPOLAMINE
     Indication: Salivary hypersecretion
     Dosage: 300 MICROGRAM, PRN ((AS NECESSARY))
     Route: 048
  7. LANSOPRAZOLE [Concomitant]
     Active Substance: LANSOPRAZOLE
     Dosage: 15 MILLIGRAM, QD
     Route: 048
  8. NICOTINE [Concomitant]
     Active Substance: NICOTINE
     Dosage: UNK
  9. OXAZEPAM [Concomitant]
     Active Substance: OXAZEPAM
     Dosage: UNK
  10. PROCYCLIDINE [Concomitant]
     Active Substance: PROCYCLIDINE
     Indication: Extrapyramidal disorder
     Dosage: 5 MILLIGRAM, BID (WHEN NEEDED)
     Route: 048
  11. SULPIRIDE [Concomitant]
     Active Substance: SULPIRIDE
     Indication: Psychotic disorder
     Dosage: 600 MILLIGRAM, QD
     Route: 048
  12. SENNA [Concomitant]
     Active Substance: SENNA LEAF\SENNOSIDES\SENNOSIDES A AND B
     Indication: Constipation
     Dosage: 15 MILLIGRAM, QD
     Route: 048
  13. TEMAZEPAM [Concomitant]
     Active Substance: TEMAZEPAM
     Dosage: UNK
  14. TILIDINE HYDROCHLORIDE [Concomitant]
     Active Substance: TILIDINE HYDROCHLORIDE
     Dosage: UNK
  15. TRAMADOL [Concomitant]
     Active Substance: TRAMADOL
     Dosage: UNK

REACTIONS (2)
  - Toxicity to various agents [Fatal]
  - Atelectasis [Fatal]

NARRATIVE: CASE EVENT DATE: 20210901
